FAERS Safety Report 19637625 (Version 1)
Quarter: 2021Q3

REPORT INFORMATION
  Report Type: Other
  Country: US (occurrence: US)
  Receive Date: 20210729
  Receipt Date: 20210729
  Transmission Date: 20211014
  Serious: Yes (Other)
  Sender: FDA-Public Use
  Company Number: US-APOTEX-2021AP028153

PATIENT
  Age: 62 Year
  Sex: Female

DRUGS (1)
  1. RANITIDINE TABLETS [Suspect]
     Active Substance: RANITIDINE HYDROCHLORIDE
     Indication: DYSPEPSIA
     Dosage: OTHER (1 TAB ONCE/ TWICE DAILY AS PRESCRIBED )
     Route: 065
     Dates: start: 200501, end: 202001

REACTIONS (1)
  - Breast cancer [Unknown]

NARRATIVE: CASE EVENT DATE: 20100222
